FAERS Safety Report 5895481-0 (Version None)
Quarter: 2008Q3

REPORT INFORMATION
  Report Type: 
  Country: None (occurrence: None)
  Receive Date: 20080924
  Receipt Date: 20080919
  Transmission Date: 20090109
  Serious: Yes (Other)
  Sender: FDA-Public Use
  Company Number: JP-AVENTIS-200812961JP

PATIENT
  Age: 84 Year
  Sex: Male

DRUGS (3)
  1. LASIX [Suspect]
     Route: 048
     Dates: start: 20060601, end: 20060601
  2. PANALDINE [Suspect]
     Route: 048
     Dates: start: 20060501, end: 20060601
  3. UNKNOWN DRUG [Suspect]

REACTIONS (1)
  - RENAL FAILURE [None]
